FAERS Safety Report 5575064-2 (Version None)
Quarter: 2007Q4

REPORT INFORMATION
  Report Type: 
  Country: None (occurrence: None)
  Receive Date: 20071221
  Receipt Date: 20071221
  Transmission Date: 20080405
  Serious: Yes (Other)
  Sender: FDA-Public Use
  Company Number: None

PATIENT
  Age: 51 Year
  Sex: Female
  Weight: 90.7194 kg

DRUGS (6)
  1. ARIPIPRAZOLE [Suspect]
     Indication: BIPOLAR DISORDER
     Dosage: 1 PILL  1 TIME DAILY  PO
     Route: 048
     Dates: start: 20050101, end: 20071219
  2. ARIPIPRAZOLE [Suspect]
     Indication: PSYCHOTIC DISORDER
     Dosage: 1 PILL  1 TIME DAILY  PO
     Route: 048
     Dates: start: 20050101, end: 20071219
  3. DILTIAZEM [Concomitant]
  4. ZOLOFT [Concomitant]
  5. LANSOPRAZOLE [Concomitant]
  6. REGLAN [Concomitant]

REACTIONS (3)
  - BLOOD CHOLESTEROL INCREASED [None]
  - LOW DENSITY LIPOPROTEIN INCREASED [None]
  - WEIGHT INCREASED [None]
